FAERS Safety Report 5011302-2 (Version None)
Quarter: 2006Q2

REPORT INFORMATION
  Report Type: 
  Country: None (occurrence: None)
  Receive Date: 20060404
  Receipt Date: 20060105
  Transmission Date: 20061013
  Serious: No
  Sender: FDA-Public Use
  Company Number: US200601000871

PATIENT
  Age: 34 Year
  Sex: Female

DRUGS (2)
  1. CYMBALTA [Suspect]
     Dosage: SEE IMAGE
  2. CYMBALTA [Suspect]
     Dosage: SEE IMAGE
     Dates: start: 20050101

REACTIONS (4)
  - DRUG EXPOSURE DURING PREGNANCY [None]
  - IRRITABILITY [None]
  - MALAISE [None]
  - TINNITUS [None]
